FAERS Safety Report 6630542-X (Version None)
Quarter: 2010Q1

REPORT INFORMATION
  Report Type: 
  Country: None (occurrence: None)
  Receive Date: 20100311
  Receipt Date: 20100119
  Transmission Date: 20100710
  Serious: No
  Sender: FDA-Public Use
  Company Number: US-BIOGENIDEC-2006BI004538

PATIENT
  Age: 62 Year
  Sex: Female
  Weight: 61 kg

DRUGS (3)
  1. AVONEX [Suspect]
     Indication: MULTIPLE SCLEROSIS
     Route: 030
     Dates: start: 19990101, end: 20030801
  2. AVONEX [Suspect]
     Route: 030
     Dates: start: 20030801, end: 20040101
  3. AVONEX [Suspect]
     Route: 030
     Dates: start: 20040101

REACTIONS (3)
  - INJECTION SITE PRURITUS [None]
  - REACTION TO PRESERVATIVES [None]
  - SKIN DISCOLOURATION [None]
